FAERS Safety Report 4501807-2 (Version None)
Quarter: 2004Q3

REPORT INFORMATION
  Report Type: 
  Country: None (occurrence: None)
  Receive Date: 20040928
  Receipt Date: 20040602
  Transmission Date: 20050211
  Serious: No
  Sender: FDA-Public Use
  Company Number: 04P-163-0262528-00

PATIENT
  Sex: Male
  Weight: 79.3795 kg

DRUGS (5)
  1. HUMIRA [Suspect]
     Indication: RHEUMATOID ARTHRITIS
     Dosage: 40 MG 1 IN 2 WK SUBCUTANEOUS
     Route: 058
     Dates: start: 20040405
  2. METHOTREXATE SODIUM [Concomitant]
  3. ROFECOXIB [Concomitant]
  4. FOLIC ACID [Concomitant]
  5. PARCETAMOL [Concomitant]

REACTIONS (1)
  - NEOPLASM PROSTATE [None]
